FAERS Safety Report 5160019-2 (Version None)
Quarter: 2006Q4

REPORT INFORMATION
  Report Type: 
  Country: None (occurrence: None)
  Receive Date: 20061129
  Receipt Date: 20060707
  Transmission Date: 20070319
  Serious: No
  Sender: FDA-Public Use
  Company Number: US-GLAXOSMITHKLINE-A0611465A

PATIENT
  Sex: Male

DRUGS (5)
  1. WELLBUTRIN SR [Suspect]
     Indication: DEPRESSION
     Dosage: 100MG PER DAY
     Route: 048
     Dates: start: 20060624
  2. BUSPAR [Concomitant]
  3. PROZAC [Concomitant]
  4. LUNESTA [Concomitant]
  5. LITHIUM CARBONATE [Concomitant]

REACTIONS (1)
  - PHARYNGOLARYNGEAL PAIN [None]
